FAERS Safety Report 14191138 (Version 2)
Quarter: 2018Q1

REPORT INFORMATION
  Report Type: Spontaneous
  Country: US (occurrence: US)
  Receive Date: 20171115
  Receipt Date: 20180110
  Transmission Date: 20180508
  Serious: No
  Sender: FDA-Public Use
  Company Number: US-PFIZER INC-2017490372

PATIENT
  Sex: Female

DRUGS (1)
  1. XELJANZ XR [Suspect]
     Active Substance: TOFACITINIB CITRATE
     Dosage: 11 MG, DAILY (HALF IN THE MORNING AND HALF AT NIGHT)

REACTIONS (3)
  - Skin infection [Unknown]
  - Wrong technique in product usage process [Unknown]
  - Rash [Unknown]
